FAERS Safety Report 24653865 (Version 1)
Quarter: 2024Q4

REPORT INFORMATION
  Report Type: Spontaneous
  Country: RU (occurrence: RU)
  Receive Date: 20241122
  Receipt Date: 20241122
  Transmission Date: 20250115
  Serious: Yes (Other)
  Sender: ALEXION PHARMACEUTICALS
  Company Number: RU-009507513-2411USA006630

PATIENT
  Weight: 43 kg

DRUGS (3)
  1. OLAPARIB [Suspect]
     Active Substance: OLAPARIB
     Indication: Pancreatic carcinoma metastatic
     Dosage: 300 MILLIGRAM, BID
  2. CARBOPLATIN [Suspect]
     Active Substance: CARBOPLATIN
     Indication: Pancreatic carcinoma metastatic
     Dosage: AUC 5
     Route: 065
  3. PACLITAXEL [Suspect]
     Active Substance: PACLITAXEL
     Indication: Pancreatic carcinoma metastatic
     Dosage: UNK
     Route: 065

REACTIONS (48)
  - Malignant neoplasm progression [Recovering/Resolving]
  - Cachexia [Unknown]
  - Mueller-Weiss syndrome [Unknown]
  - Gastritis erosive [Unknown]
  - Gastrointestinal haemorrhage [Recovered/Resolved]
  - Bronchopulmonary aspergillosis [Unknown]
  - Candida pneumonia [Unknown]
  - Hydrothorax [Recovered/Resolved]
  - Hepatitis toxic [Unknown]
  - Cholestasis [Unknown]
  - Bile duct stenosis [Unknown]
  - Hepatic cytolysis [Unknown]
  - Gastric haemorrhage [Recovered/Resolved]
  - Hypokalaemia [Unknown]
  - Pulmonary oedema [Unknown]
  - Respiratory failure [Recovering/Resolving]
  - Multiple organ dysfunction syndrome [Unknown]
  - Acute kidney injury [Unknown]
  - Genital haemorrhage [Recovered/Resolved]
  - Circulatory collapse [Unknown]
  - Haemothorax [Unknown]
  - Toxicity to various agents [Unknown]
  - Haematotoxicity [Unknown]
  - Leukopenia [Recovered/Resolved]
  - Neutropenia [Recovered/Resolved]
  - Thrombocytopenia [Not Recovered/Not Resolved]
  - Myelodysplastic syndrome [Not Recovered/Not Resolved]
  - Anaemia [Unknown]
  - Febrile neutropenia [Recovered/Resolved]
  - Gastrointestinal ulcer [Unknown]
  - Diabetic nephropathy [Unknown]
  - Splenomegaly [Unknown]
  - Pleural effusion [Unknown]
  - Malnutrition [Unknown]
  - Localised oedema [Unknown]
  - Adverse drug reaction [Not Recovered/Not Resolved]
  - Abdominal distension [Recovered/Resolved]
  - Pain [Unknown]
  - Nitrite urine present [Unknown]
  - Therapy partial responder [Unknown]
  - White blood cells urine positive [Unknown]
  - Bacterial test positive [Unknown]
  - Pyrexia [Recovered/Resolved]
  - Asthenia [Recovered/Resolved]
  - Nausea [Recovered/Resolved]
  - Vomiting [Unknown]
  - Diarrhoea [Recovering/Resolving]
  - Off label use [Unknown]
